FAERS Safety Report 4806165-1 (Version None)
Quarter: 2005Q4

REPORT INFORMATION
  Report Type: 
  Country: None (occurrence: None)
  Receive Date: 20051021
  Receipt Date: 20051017
  Transmission Date: 20060501
  Serious: Yes (Hospitalization, Disabling)
  Sender: FDA-Public Use
  Company Number: PL-MERCK-0510POL00013

PATIENT
  Sex: Female

DRUGS (1)
  1. VIOXX [Suspect]
     Indication: SPINAL OSTEOARTHRITIS
     Route: 065
     Dates: start: 20010101, end: 20040101

REACTIONS (13)
  - ANGINA PECTORIS [None]
  - ASTHENIA [None]
  - BLOOD PRESSURE ABNORMAL [None]
  - CARDIAC DISORDER [None]
  - CARDIAC FAILURE [None]
  - DECREASED IMMUNE RESPONSIVENESS [None]
  - DYSPNOEA [None]
  - GENERAL PHYSICAL HEALTH DETERIORATION [None]
  - HEADACHE [None]
  - HYPERTENSION [None]
  - INSOMNIA [None]
  - MYOCARDIAL ISCHAEMIA [None]
  - SYNCOPE [None]
